FAERS Safety Report 6215854-6 (Version None)
Quarter: 2009Q2

REPORT INFORMATION
  Report Type: 
  Country: None (occurrence: None)
  Receive Date: 20090605
  Receipt Date: 20090529
  Transmission Date: 20091009
  Serious: Yes (Other)
  Sender: FDA-Public Use
  Company Number: DE-JNJFOC-20090600237

PATIENT
  Age: 23 Year
  Sex: Female

DRUGS (10)
  1. HALOPERIDOL [Suspect]
     Indication: CATATONIA
     Route: 065
  2. PREDNISOLONE [Concomitant]
     Route: 065
  3. PREDNISOLONE [Concomitant]
     Indication: IMMUNOSUPPRESSION
     Route: 065
  4. AZATHIOPRINE [Concomitant]
     Route: 065
  5. AMISULPRIDE [Concomitant]
     Route: 065
  6. AMISULPRIDE [Concomitant]
     Indication: PSYCHOTIC DISORDER
     Route: 065
  7. QUETIAPINE FUMARATE [Concomitant]
     Route: 065
  8. QUETIAPINE FUMARATE [Concomitant]
     Route: 065
  9. QUETIAPINE FUMARATE [Concomitant]
     Indication: PSYCHOTIC DISORDER
     Route: 065
  10. BUDESONIDE [Concomitant]
     Route: 065

REACTIONS (2)
  - EXTRAPYRAMIDAL DISORDER [None]
  - THINKING ABNORMAL [None]
